FAERS Safety Report 5382717-8 (Version None)
Quarter: 2007Q3

REPORT INFORMATION
  Report Type: 
  Country: None (occurrence: None)
  Receive Date: 20070702
  Receipt Date: 20070317
  Transmission Date: 20080115
  Serious: No
  Sender: FDA-Public Use
  Company Number: 2007PV031931

PATIENT
  Age: 65 Year
  Sex: Female
  Weight: 85.2762 kg

DRUGS (2)
  1. SYMLIN [Suspect]
     Dosage: SC
     Route: 058
     Dates: start: 20061101, end: 20070301
  2. LEVEMIR [Concomitant]

REACTIONS (1)
  - SKIN HAEMORRHAGE [None]
